APPROVED DRUG PRODUCT: MIRTAZAPINE
Active Ingredient: MIRTAZAPINE
Strength: 30MG
Dosage Form/Route: TABLET;ORAL
Application: A077666 | Product #002 | TE Code: AB
Applicant: APOTEX INC
Approved: Aug 22, 2007 | RLD: No | RS: No | Type: RX